FAERS Safety Report 4591384-2 (Version None)
Quarter: 2005Q1

REPORT INFORMATION
  Report Type: 
  Country: None (occurrence: None)
  Receive Date: 20050225
  Receipt Date: 20041021
  Transmission Date: 20050727
  Serious: Yes (Other)
  Sender: FDA-Public Use
  Company Number: PHEH2004US11297

PATIENT
  Age: 75 Year
  Sex: Female

DRUGS (4)
  1. FEMARA [Concomitant]
  2. LASIX [Concomitant]
     Dosage: 40 MG, QD
     Route: 048
  3. CELEXA [Concomitant]
     Dosage: 20 MG, QD
     Route: 048
  4. ZOMETA [Suspect]
     Indication: BREAST CANCER METASTATIC
     Dosage: UNSPECIFIED
     Dates: start: 20030101, end: 20040101

REACTIONS (4)
  - BONE DISORDER [None]
  - IMPAIRED HEALING [None]
  - TOOTH EXTRACTION [None]
  - TOOTH INFECTION [None]
